FAERS Safety Report 5375897-1 (Version None)
Quarter: 2007Q2

REPORT INFORMATION
  Report Type: 
  Country: None (occurrence: None)
  Receive Date: 20070627
  Receipt Date: 20070627
  Transmission Date: 20071010
  Serious: Yes (Life-Threatening, Disabling)
  Sender: FDA-Public Use
  Company Number: None

PATIENT
  Sex: Female
  Weight: 63.5036 kg

DRUGS (17)
  1. ASTELIN [Suspect]
     Indication: RHINITIS ALLERGIC
     Dosage: 1-2 SPRAYS BID NASAL
     Route: 045
     Dates: start: 20070528, end: 20070528
  2. ACIPHEX [Concomitant]
  3. CRANBERRY [Concomitant]
  4. COUMADIN [Concomitant]
  5. ALTACE [Concomitant]
  6. POTASSIUM CHLORIDE [Concomitant]
  7. LASIX [Concomitant]
  8. L-CARNITINE [Concomitant]
  9. CENTRUM SILVER [Concomitant]
  10. COREG [Concomitant]
  11. COLACE [Concomitant]
  12. ALLEGRA D 24 HOUR [Concomitant]
  13. FOLTX [Concomitant]
  14. ALDACTONE [Concomitant]
  15. PROTONIX [Concomitant]
  16. THIAMINE [Concomitant]
  17. LANOXIN [Concomitant]

REACTIONS (3)
  - DIZZINESS [None]
  - IMPLANTABLE DEFIBRILLATOR MALFUNCTION [None]
  - SOMNOLENCE [None]
